FAERS Safety Report 24698547 (Version 1)
Quarter: 2024Q4

REPORT INFORMATION
  Report Type: Spontaneous
  Country: US (occurrence: US)
  Receive Date: 20241204
  Receipt Date: 20241204
  Transmission Date: 20250115
  Serious: No
  Sender: INCYTE
  Company Number: US-INCYTE CORPORATION-2024IN012236

PATIENT

DRUGS (1)
  1. OPZELURA [Suspect]
     Active Substance: RUXOLITINIB PHOSPHATE
     Indication: Vitiligo
     Dosage: BID
     Route: 061

REACTIONS (4)
  - Application site acne [Unknown]
  - Achromotrichia acquired [Unknown]
  - Off label use [Unknown]
  - Drug effective for unapproved indication [Unknown]
